FAERS Safety Report 23721278 (Version 1)
Quarter: 2024Q2

REPORT INFORMATION
  Report Type: Spontaneous
  Country: US (occurrence: US)
  Receive Date: 20240409
  Receipt Date: 20240409
  Transmission Date: 20240716
  Serious: Yes (Other)
  Sender: FDA-Public Use
  Company Number: US-SA-SAC20240408000271

PATIENT
  Sex: Female

DRUGS (32)
  1. DUPIXENT [Suspect]
     Active Substance: DUPILUMAB
     Indication: Dermatitis atopic
     Dosage: 300 MG QOW
     Route: 058
  2. AJOVY [Concomitant]
     Active Substance: FREMANEZUMAB-VFRM
  3. ALBUTEROL SULFATE [Concomitant]
     Active Substance: ALBUTEROL SULFATE
  4. ALLEGRA ALLERGY [Concomitant]
     Active Substance: FEXOFENADINE HYDROCHLORIDE
  5. BUMETANIDE [Concomitant]
     Active Substance: BUMETANIDE
  6. CLONAZEPAM [Concomitant]
     Active Substance: CLONAZEPAM
  7. EUCRISA [Concomitant]
     Active Substance: CRISABOROLE
  8. FLUTICASONE [Concomitant]
     Active Substance: FLUTICASONE
  9. MYRBETRIQ [Concomitant]
     Active Substance: MIRABEGRON
  10. OLMESARTAN [Concomitant]
     Active Substance: OLMESARTAN
  11. OPZELURA [Concomitant]
     Active Substance: RUXOLITINIB PHOSPHATE
  12. PRAMIPEXOLE [Concomitant]
     Active Substance: PRAMIPEXOLE\PRAMIPEXOLE DIHYDROCHLORIDE
  13. PREGABALIN [Concomitant]
     Active Substance: PREGABALIN
  14. SUMATRIPTAN [Concomitant]
     Active Substance: SUMATRIPTAN
  15. TOPAMAX [Concomitant]
     Active Substance: TOPIRAMATE
  16. TRAMADOL HCL [Concomitant]
     Active Substance: TRAMADOL HYDROCHLORIDE
  17. VENLAFAXINE [Concomitant]
     Active Substance: VENLAFAXINE HYDROCHLORIDE
  18. VITAMIN B12 [Concomitant]
     Active Substance: CYANOCOBALAMIN
  19. VITAMIN D NOS [Concomitant]
     Active Substance: VITAMIN D NOS
  20. BETAMETHASONE [Concomitant]
     Active Substance: BETAMETHASONE\BETAMETHASONE DIPROPIONATE
  21. ATORVASTATIN [Concomitant]
     Active Substance: ATORVASTATIN
  22. HYDROCODONE [Concomitant]
     Active Substance: HYDROCODONE
  23. IRBESARTAN [Concomitant]
     Active Substance: IRBESARTAN
  24. CENTRUM ADVANCE 50+ ADULTS [Concomitant]
  25. LEVOTHYROXINE [Concomitant]
     Active Substance: LEVOTHYROXINE\LEVOTHYROXINE SODIUM
  26. MAGNESIUM [Concomitant]
     Active Substance: MAGNESIUM
  27. OXCARBAZEPINE [Concomitant]
     Active Substance: OXCARBAZEPINE
  28. .ALPHA.-TOCOPHEROL [Concomitant]
     Active Substance: .ALPHA.-TOCOPHEROL
  29. ZINC [Concomitant]
     Active Substance: PYRITHIONE ZINC\ZINC\ZINC CHLORIDE
  30. VENLAFAXINE [Concomitant]
     Active Substance: VENLAFAXINE HYDROCHLORIDE
  31. SPIRONOLACTONE [Concomitant]
     Active Substance: SPIRONOLACTONE
  32. HYDROCHLOROTHIAZIDE [Concomitant]
     Active Substance: HYDROCHLOROTHIAZIDE

REACTIONS (6)
  - Parkinson^s disease [Not Recovered/Not Resolved]
  - Depression [Not Recovered/Not Resolved]
  - Headache [Not Recovered/Not Resolved]
  - Fatigue [Not Recovered/Not Resolved]
  - Back disorder [Not Recovered/Not Resolved]
  - Middle insomnia [Not Recovered/Not Resolved]
